FAERS Safety Report 5109131-4 (Version None)
Quarter: 2006Q3

REPORT INFORMATION
  Report Type: 
  Country: None (occurrence: None)
  Receive Date: 20060920
  Receipt Date: 20060714
  Transmission Date: 20061208
  Serious: Yes (Other)
  Sender: FDA-Public Use
  Company Number: US-ROCHE-456042

PATIENT
  Sex: Female
  Weight: 3.5 kg

DRUGS (2)
  1. ACCUTANE [Suspect]
     Dates: start: 19920930, end: 19930111
  2. ACCUTANE [Suspect]
     Dates: start: 19950710, end: 19951016

REACTIONS (10)
  - CAESAREAN SECTION [None]
  - DRUG EXPOSURE DURING PREGNANCY [None]
  - FOETAL HEART RATE ABNORMAL [None]
  - NORMAL DELIVERY [None]
  - PLACENTA PRAEVIA [None]
  - PLACENTAL INFARCTION [None]
  - PRE-ECLAMPSIA [None]
  - PREGNANCY [None]
  - PREMATURE SEPARATION OF PLACENTA [None]
  - PROLONGED PREGNANCY [None]
